FAERS Safety Report 14309715 (Version 1)
Quarter: 2017Q4

REPORT INFORMATION
  Report Type: Report from Study
  Country: KR (occurrence: KR)
  Receive Date: 20171220
  Receipt Date: 20171220
  Transmission Date: 20180321
  Serious: Yes (Hospitalization)
  Sender: FDA-Public Use
  Company Number: KR-TAKEDA-2017TEU005458

PATIENT
  Age: 56 Year
  Sex: Female
  Weight: 65 kg

DRUGS (11)
  1. ALOGLIPTIN. [Suspect]
     Active Substance: ALOGLIPTIN
     Indication: TYPE 2 DIABETES MELLITUS
     Dosage: 25 MG, QD
     Route: 048
     Dates: start: 20170209
  2. NUTRIFLEX LIPID PERI [Concomitant]
     Indication: GASTRITIS
     Dosage: UNK, QD
     Route: 042
     Dates: start: 20171013, end: 20171013
  3. OLMETEC [Concomitant]
     Active Substance: OLMESARTAN MEDOXOMIL
     Indication: HYPERTENSION
     Dosage: UNK, QD
     Route: 048
     Dates: start: 20160113
  4. OMP [Concomitant]
     Active Substance: OMEPRAZOLE
     Indication: GASTRITIS
     Dosage: UNK, QD
     Route: 048
     Dates: start: 20171012, end: 20171026
  5. RECOMIDE [Concomitant]
     Indication: GASTRITIS
     Dosage: UNK UNK, TID
     Route: 048
     Dates: start: 20171013, end: 20171026
  6. LACTOWEL [Concomitant]
     Indication: GASTRITIS
     Dosage: UNK UNK, TID
     Route: 048
     Dates: start: 20171012, end: 20171026
  7. NEXIUM [Concomitant]
     Active Substance: ESOMEPRAZOLE MAGNESIUM
     Indication: GASTRITIS
     Dosage: UNK, QD
     Route: 042
     Dates: start: 20171011, end: 20171011
  8. MACPERAN [Concomitant]
     Active Substance: METOCLOPRAMIDE HYDROCHLORIDE
     Indication: GASTRITIS
     Dosage: UNK, QD
     Route: 042
     Dates: start: 20171011, end: 20171011
  9. LIPITOR [Concomitant]
     Active Substance: ATORVASTATIN CALCIUM
     Indication: DYSLIPIDAEMIA
     Dosage: UNK, QD
     Route: 048
     Dates: start: 20170209
  10. LIVIAL [Concomitant]
     Active Substance: TIBOLONE
     Indication: MENOPAUSAL DISORDER
     Dosage: UNK, QD
     Route: 048
     Dates: start: 20160113
  11. GASMOTIN [Concomitant]
     Active Substance: MOSAPRIDE CITRATE
     Indication: GASTRITIS
     Dosage: UNK, TID
     Route: 048
     Dates: start: 20171011, end: 20171212

REACTIONS (1)
  - Gastritis [Recovered/Resolved]

NARRATIVE: CASE EVENT DATE: 20171011
